FAERS Safety Report 7867926-8 (Version None)
Quarter: 2011Q4

REPORT INFORMATION
  Report Type: 
  Country: None (occurrence: None)
  Receive Date: 20111028
  Receipt Date: 20111026
  Transmission Date: 20120403
  Serious: Yes (Hospitalization)
  Sender: FDA-Public Use
  Company Number: PHHY2011DE88014

PATIENT
  Sex: Male

DRUGS (8)
  1. AFINITOR [Suspect]
     Indication: RENAL CELL CARCINOMA
     Dosage: 10 MG, UNK
     Route: 048
     Dates: start: 20110502, end: 20111024
  2. VOTRIENT [Concomitant]
  3. CALCIUM [Concomitant]
     Dosage: 600 MG, PER DAY
     Route: 048
  4. ZOMETA [Suspect]
     Indication: BONE DISORDER
     Dosage: 4 MG/5ML
     Route: 042
     Dates: start: 20101122
  5. SUNITINIB MALATE [Concomitant]
     Dosage: 50 MG/4 WEEKS/2 WEEKS PAUSE
     Dates: start: 20110207
  6. VITAMIN D [Concomitant]
     Dosage: 400 I.E./DAY
     Route: 048
  7. AMLODIPINE [Concomitant]
     Dosage: 5 MG, UNK
     Dates: start: 20100901
  8. METOPROLOL TARTRATE [Concomitant]
     Dosage: 95 MG, UNK
     Dates: start: 20100901

REACTIONS (3)
  - GENERAL PHYSICAL HEALTH DETERIORATION [None]
  - WEIGHT DECREASED [None]
  - ASTHENIA [None]
